FAERS Safety Report 17669880 (Version 1)
Quarter: 2020Q2

REPORT INFORMATION
  Report Type: Spontaneous
  Country: US (occurrence: US)
  Receive Date: 20200415
  Receipt Date: 20200415
  Transmission Date: 20200713
  Serious: Yes (Other)
  Sender: FDA-Public Use
  Company Number: US-PFIZER INC-2020153187

PATIENT
  Sex: Female

DRUGS (1)
  1. NARDIL [Suspect]
     Active Substance: PHENELZINE SULFATE
     Indication: DEPRESSION
     Dosage: UNK

REACTIONS (5)
  - Feeling abnormal [Unknown]
  - Paraesthesia [Unknown]
  - Hallucination, auditory [Unknown]
  - Sleep disorder [Unknown]
  - Hallucination, visual [Unknown]
